FAERS Safety Report 18434964 (Version 1)
Quarter: 2020Q4

REPORT INFORMATION
  Report Type: Spontaneous
  Country: US (occurrence: US)
  Receive Date: 20201027
  Receipt Date: 20201027
  Transmission Date: 20210114
  Serious: No
  Sender: FDA-Public Use
  Company Number: None

PATIENT
  Age: 13 Year
  Sex: Male

DRUGS (1)
  1. HUMATROPE [Suspect]
     Active Substance: SOMATROPIN
     Indication: HYPOPITUITARISM
     Route: 058
     Dates: start: 20190807

REACTIONS (4)
  - Wrong technique in product usage process [None]
  - Incorrect dose administered [None]
  - Vomiting [None]
  - Product preparation error [None]

NARRATIVE: CASE EVENT DATE: 20201015
